FAERS Safety Report 11770982 (Version 2)
Quarter: 2017Q2

REPORT INFORMATION
  Report Type: Spontaneous
  Country: US (occurrence: US)
  Receive Date: 20151123
  Receipt Date: 20170609
  Transmission Date: 20170829
  Serious: Yes (Other)
  Sender: FDA-Public Use
  Company Number: US-JNJFOC-20151014560

PATIENT
  Sex: Female

DRUGS (1)
  1. ORTHO-NOVUM [Suspect]
     Active Substance: ETHINYL ESTRADIOL\NORETHINDRONE
     Indication: CONTRACEPTION
     Route: 048
     Dates: start: 1966, end: 1971

REACTIONS (3)
  - Nonspecific reaction [Unknown]
  - Malaise [Unknown]
  - Systemic lupus erythematosus [Unknown]
